FAERS Safety Report 17532649 (Version 1)
Quarter: 2020Q1

REPORT INFORMATION
  Report Type: Spontaneous
  Country: GB (occurrence: GB)
  Receive Date: 20200312
  Receipt Date: 20200312
  Transmission Date: 20200409
  Serious: Yes (Hospitalization, Other)
  Sender: FDA-Public Use
  Company Number: GB-SA-2020SA060741

PATIENT
  Age: 36 Year
  Sex: Female

DRUGS (4)
  1. CYCLOPHOSPHAMIDE. [Suspect]
     Active Substance: CYCLOPHOSPHAMIDE
     Indication: HYPERSENSITIVITY VASCULITIS
     Dosage: 2.5 MG/KG, QD
     Route: 048
     Dates: start: 2016, end: 2016
  2. ALEMTUZUMAB [Suspect]
     Active Substance: ALEMTUZUMAB
     Indication: RELAPSING-REMITTING MULTIPLE SCLEROSIS
     Dosage: RECEIVED 5 DAY COURSE
     Dates: start: 201503, end: 2015
  3. CYCLOPHOSPHAMIDE. [Suspect]
     Active Substance: CYCLOPHOSPHAMIDE
     Dosage: UNK
     Dates: start: 2016
  4. CYCLOPHOSPHAMIDE. [Suspect]
     Active Substance: CYCLOPHOSPHAMIDE
     Indication: CENTRAL NERVOUS SYSTEM VASCULITIS
     Dosage: 1 G BOLUS
     Dates: start: 2016, end: 2016

REACTIONS (8)
  - Hypersensitivity vasculitis [Recovered/Resolved]
  - Partial seizures [Recovered/Resolved]
  - Muscle spasms [Recovered/Resolved]
  - Aphasia [Recovered/Resolved]
  - Lymphopenia [Unknown]
  - Central nervous system vasculitis [Recovered/Resolved]
  - Hemianopia [Recovered/Resolved]
  - Dysgeusia [Recovered/Resolved]

NARRATIVE: CASE EVENT DATE: 2016
